FAERS Safety Report 9072745 (Version 1)
Quarter: 2013Q1

REPORT INFORMATION
  Report Type: Report from Study
  Country: US (occurrence: US)
  Receive Date: 20130129
  Receipt Date: 20130129
  Transmission Date: 20140127
  Serious: No
  Sender: FDA-Public Use
  Company Number: US-ABBOTT-12P-163-0919737-00

PATIENT
  Age: 63 Year
  Sex: Female

DRUGS (9)
  1. HUMIRA 40 MG/0.8 ML PEN [Suspect]
     Indication: ARTHRITIS
     Dosage: EVERY TWO WEEKS
     Dates: start: 2010
  2. PRAVASTATIN [Concomitant]
     Indication: BLOOD CHOLESTEROL INCREASED
     Dosage: 40 MG DAILY
  3. TRAMADOL [Concomitant]
     Indication: PAIN
  4. DOXAZOSIN [Concomitant]
     Indication: BLOOD PRESSURE
     Dosage: 2 MG DAILY
  5. POTASSIUM [Concomitant]
     Indication: MINERAL SUPPLEMENTATION
     Dosage: DAILY
  6. CARVEDILOL [Concomitant]
     Indication: BLOOD PRESSURE
     Dosage: 25 MG DAILY
  7. TEVETEN/HCTZ [Concomitant]
     Indication: BLOOD PRESSURE
     Dosage: 600MG/12.5MG DAILY
  8. FOLIC [Concomitant]
     Indication: PRODUCT USED FOR UNKNOWN INDICATION
     Dosage: 1 MG DAILY
  9. SULFADIAZINE [Concomitant]
     Indication: PRODUCT USED FOR UNKNOWN INDICATION

REACTIONS (1)
  - Red blood cell sedimentation rate increased [Not Recovered/Not Resolved]
